FAERS Safety Report 6526690-5 (Version None)
Quarter: 2010Q1

REPORT INFORMATION
  Report Type: 
  Country: None (occurrence: None)
  Receive Date: 20100104
  Receipt Date: 20100104
  Transmission Date: 20100710
  Serious: Yes (Other)
  Sender: FDA-Public Use
  Company Number: None

PATIENT

DRUGS (1)
  1. HEPARIN SODIUM 1000 UNITS/ML; 10 ML MULTIPLE DOSE VIAL APP PHARMACEUTI [Suspect]
     Indication: CAROTID ARTERY DISSECTION
     Dosage: 7,000 UNITS IV BOLUS (040) 9,000 UNITS IV BOLUS (040)
     Route: 040
     Dates: start: 20091218, end: 20091229

REACTIONS (2)
  - PRODUCT MEASURED POTENCY ISSUE [None]
  - THROMBOSIS [None]
